FAERS Safety Report 14035162 (Version 1)
Quarter: 2017Q4

REPORT INFORMATION
  Report Type: Spontaneous
  Country: US (occurrence: US)
  Receive Date: 20171003
  Receipt Date: 20171003
  Transmission Date: 20180321
  Serious: No
  Sender: FDA-Public Use
  Company Number: PHEH2017US031183

PATIENT
  Sex: Female

DRUGS (2)
  1. REFRESH P.M. [Concomitant]
     Active Substance: MINERAL OIL\PETROLATUM
     Indication: DRY EYE
     Route: 047
  2. TRAVATAN Z [Suspect]
     Active Substance: TRAVOPROST
     Indication: PRODUCT USED FOR UNKNOWN INDICATION
     Dosage: UNK
     Route: 047

REACTIONS (7)
  - Eye irritation [Unknown]
  - Migraine [Unknown]
  - Headache [Unknown]
  - Eye pain [Unknown]
  - Erythema [Unknown]
  - Fatigue [Unknown]
  - Pain [Unknown]
